FAERS Safety Report 9099129 (Version 2)
Quarter: 2013Q2

REPORT INFORMATION
  Report Type: Spontaneous
  Country: US (occurrence: US)
  Receive Date: 20130214
  Receipt Date: 20130515
  Transmission Date: 20140414
  Serious: Yes (Death)
  Sender: FDA-Public Use
  Company Number: US-COVIDIEN/TYCO HEALTHCARE/MALLINCKRODT-T201204388

PATIENT
  Age: 49 Year
  Sex: Female

DRUGS (5)
  1. FENTANYL TRANSDERMAL SYSTEM [Suspect]
     Indication: PAIN
     Dosage: 50 UG/HR Q 72 HOURS
     Dates: end: 20130101
  2. PERCOCET /00446701/ [Suspect]
     Indication: PAIN
     Dosage: 10 MG, QID PRN
  3. GABAPENTIN [Concomitant]
     Indication: NEURALGIA
     Dosage: 800 MG, TID
  4. DIAZEPAM [Concomitant]
     Indication: MUSCLE SPASMS
     Dosage: 10 MG, UP TO FOUR TIMES A DAY PRN
  5. DIAZEPAM [Concomitant]
     Indication: ANXIETY

REACTIONS (4)
  - Pain [Recovered/Resolved]
  - Mobility decreased [Recovered/Resolved]
  - Arthralgia [Recovered/Resolved]
  - Back pain [Recovered/Resolved]
